FAERS Safety Report 6004692-5 (Version None)
Quarter: 2008Q4

REPORT INFORMATION
  Report Type: 
  Country: None (occurrence: None)
  Receive Date: 20081216
  Receipt Date: 20081205
  Transmission Date: 20090506
  Serious: Yes (Hospitalization)
  Sender: FDA-Public Use
  Company Number: US-PFIZER INC-2008071356

PATIENT
  Sex: Male
  Weight: 119.29 kg

DRUGS (13)
  1. BLINDED *PLACEBO [Suspect]
     Indication: OSTEOARTHRITIS
     Route: 048
     Dates: start: 20080411
  2. CELECOXIB [Suspect]
     Indication: OSTEOARTHRITIS
     Route: 048
     Dates: start: 20080411
  3. BLINDED IBUPROFEN [Suspect]
     Indication: OSTEOARTHRITIS
     Route: 048
     Dates: start: 20080411
  4. BLINDED NAPROXEN [Suspect]
     Indication: OSTEOARTHRITIS
     Route: 048
     Dates: start: 20080411
  5. BLINDED *PLACEBO [Suspect]
     Indication: RHEUMATOID ARTHRITIS
  6. CELECOXIB [Suspect]
     Indication: RHEUMATOID ARTHRITIS
  7. BLINDED IBUPROFEN [Suspect]
     Indication: RHEUMATOID ARTHRITIS
  8. BLINDED NAPROXEN [Suspect]
     Indication: RHEUMATOID ARTHRITIS
  9. NEXIUM [Concomitant]
     Route: 048
     Dates: start: 20080411, end: 20080815
  10. SIMVASTATIN [Concomitant]
     Dosage: UNK
     Route: 048
     Dates: start: 19980101
  11. TERAZOSIN HYDROCHLORIDE [Concomitant]
     Dosage: UNK
     Route: 048
     Dates: start: 19980101
  12. LOTREL [Concomitant]
     Dosage: UNK
     Dates: start: 20040101
  13. HYDROCHLOROTHIAZIDE [Concomitant]
     Dosage: UNK
     Route: 048
     Dates: start: 20060101

REACTIONS (1)
  - KNEE ARTHROPLASTY [None]
